FAERS Safety Report 15937885 (Version 4)
Quarter: 2020Q3

REPORT INFORMATION
  Report Type: Spontaneous
  Country: US (occurrence: US)
  Receive Date: 20190208
  Receipt Date: 20200710
  Transmission Date: 20201102
  Serious: Yes (Disabling, Other)
  Sender: FDA-Public Use
  Company Number: US-009507513-1811USA006320

PATIENT
  Sex: Male
  Weight: 102.04 kg

DRUGS (8)
  1. ZOSTAVAX [Suspect]
     Active Substance: VARICELLA-ZOSTER VIRUS STRAIN OKA/MERCK LIVE ANTIGEN
     Indication: HERPES ZOSTER
  2. STERILE DILUENT (WATER) [Suspect]
     Active Substance: WATER
     Indication: ROUTINE HEALTH MAINTENANCE
     Dosage: UNK
     Route: 058
     Dates: start: 20170510, end: 20170510
  3. ATORVASTATIN [Concomitant]
     Active Substance: ATORVASTATIN
     Indication: BLOOD CHOLESTEROL INCREASED
     Dosage: 80 MILLIGRAM, QD
     Route: 048
     Dates: start: 2016
  4. STERILE DILUENT (WATER) [Suspect]
     Active Substance: WATER
     Indication: PROPHYLAXIS
  5. ENBREL [Concomitant]
     Active Substance: ETANERCEPT
     Indication: PSORIASIS
     Dosage: 1 DOSAGE FORM, QW
     Dates: start: 2016
  6. OLMESARTAN MEDOXOMIL. [Concomitant]
     Active Substance: OLMESARTAN MEDOXOMIL
     Indication: HYPERTENSION
     Dosage: 1 DOSAGE FORM, QD
     Route: 048
     Dates: start: 2015
  7. ZOSTAVAX [Suspect]
     Active Substance: VARICELLA-ZOSTER VIRUS STRAIN OKA/MERCK LIVE ANTIGEN
     Indication: ROUTINE HEALTH MAINTENANCE
     Dosage: .65 MILLILITER
     Route: 058
     Dates: start: 20170510
  8. PRIMIDONE. [Concomitant]
     Active Substance: PRIMIDONE
     Indication: TREMOR
     Dosage: 50 MILLIGRAM, QD
     Route: 048
     Dates: start: 2016

REACTIONS (17)
  - Deafness [Unknown]
  - Arthritis [Unknown]
  - Carpal tunnel syndrome [Unknown]
  - Urticaria [Unknown]
  - Dyspepsia [Recovered/Resolved]
  - Hypoacusis [Unknown]
  - Gastrooesophageal reflux disease [Unknown]
  - Skin cancer [Unknown]
  - Pyrexia [Unknown]
  - Dry mouth [Unknown]
  - Large intestine polyp [Unknown]
  - Foot operation [Unknown]
  - Visual impairment [Unknown]
  - Blindness [Unknown]
  - Intervertebral disc protrusion [Unknown]
  - Appendicectomy [Unknown]
  - Facial paralysis [Not Recovered/Not Resolved]

NARRATIVE: CASE EVENT DATE: 201705
